FAERS Safety Report 6640664-5 (Version None)
Quarter: 2010Q1

REPORT INFORMATION
  Report Type: 
  Country: None (occurrence: None)
  Receive Date: 20100302
  Receipt Date: 20100116
  Transmission Date: 20100710
  Serious: No
  Sender: FDA-Public Use
  Company Number: 2010007274

PATIENT
  Age: 69 Year
  Sex: Female
  Weight: 63.5 kg

DRUGS (3)
  1. TOVIAZ [Suspect]
     Indication: INCONTINENCE
     Dosage: 8 MG, 1X/DAY, ORAL
     Route: 048
     Dates: start: 20091101
  2. LIPITOR [Concomitant]
  3. PREMARIN [Concomitant]

REACTIONS (1)
  - DRUG INEFFECTIVE [None]
